FAERS Safety Report 8785399 (Version 2)
Quarter: 2012Q4

REPORT INFORMATION
  Report Type: 
  Country: US (occurrence: US)
  Receive Date: 20120914
  Receipt Date: 20121210
  Transmission Date: 20130627
  Serious: Yes (Hospitalization)
  Sender: FDA-Public Use
  Company Number: US-SHIRE-ALL1-2012-04339

PATIENT
  Age: 9 Year
  Sex: Male
  Weight: 23.04 kg

DRUGS (1)
  1. VYVANSE [Suspect]
     Indication: ATTENTION DEFICIT/HYPERACTIVITY DISORDER
     Dosage: 20 mg, 1x/day:qd
     Route: 048
     Dates: start: 20120830, end: 20120831

REACTIONS (3)
  - Chest pain [Recovered/Resolved]
  - Electrocardiogram T wave inversion [Recovered/Resolved]
  - Pain in extremity [Recovered/Resolved]
